FAERS Safety Report 12680999 (Version 1)
Quarter: 2016Q3

REPORT INFORMATION
  Report Type: Spontaneous
  Country: US (occurrence: US)
  Receive Date: 20160824
  Receipt Date: 20160824
  Transmission Date: 20161109
  Serious: Yes (Other)
  Sender: FDA-Public Use
  Company Number: US-PFIZER INC-2016392846

PATIENT
  Age: 44 Year
  Sex: Female
  Weight: 72.57 kg

DRUGS (2)
  1. ALPRAZOLAM. [Concomitant]
     Active Substance: ALPRAZOLAM
     Dosage: 1 MG, 3X/DAY
  2. EMBEDA [Suspect]
     Active Substance: MORPHINE SULFATE\NALTREXONE HYDROCHLORIDE
     Indication: MIGRAINE
     Dosage: 20-0.8MG ONE CAPSULE BY MOUTH AT NIGHT
     Route: 048
     Dates: start: 20160816

REACTIONS (4)
  - Malaise [Recovered/Resolved]
  - Seizure like phenomena [Recovered/Resolved]
  - Epileptic aura [Recovered/Resolved]
  - Vomiting [Recovered/Resolved]

NARRATIVE: CASE EVENT DATE: 20160816
